FAERS Safety Report 8571993-6 (Version None)
Quarter: 2012Q3

REPORT INFORMATION
  Report Type: 
  Country: None (occurrence: None)
  Receive Date: 20120724
  Receipt Date: 20120713
  Transmission Date: 20120928
  Serious: Yes (Other)
  Sender: FDA-Public Use
  Company Number: 2012MA008877

PATIENT
  Age: 62 Year
  Sex: Female

DRUGS (18)
  1. FERROUS SULFATE TAB [Suspect]
     Dates: start: 20120629
  2. . [Concomitant]
  3. . [Concomitant]
  4. . [Concomitant]
  5. . [Concomitant]
  6. . [Concomitant]
  7. . [Concomitant]
  8. . [Concomitant]
  9. . [Concomitant]
  10. LEVOTHYROXINE SODIUM [Concomitant]
  11. SCOPOLAMINE [Concomitant]
  12. LOPERAMIDE [Concomitant]
  13. . [Concomitant]
  14. . [Concomitant]
  15. IODINE [Concomitant]
  16. METFORMIN HYDROCHLORIDE [Concomitant]
  17. . [Concomitant]
  18. . [Concomitant]

REACTIONS (4)
  - DIARRHOEA [None]
  - CONSTIPATION [None]
  - ABDOMINAL PAIN UPPER [None]
  - HYPERHIDROSIS [None]
